FAERS Safety Report 23658291 (Version 4)
Quarter: 2024Q2

REPORT INFORMATION
  Report Type: Report from Study
  Country: US (occurrence: US)
  Receive Date: 20240321
  Receipt Date: 20240402
  Transmission Date: 20240716
  Serious: Yes (Hospitalization, Other)
  Sender: FDA-Public Use
  Company Number: US-GILEAD-2024-0666500

PATIENT
  Sex: Female

DRUGS (5)
  1. AMBRISENTAN [Suspect]
     Active Substance: AMBRISENTAN
     Indication: Pulmonary hypertension
     Dosage: 10 MG, QD
     Route: 065
     Dates: start: 20230221
  2. AMBRISENTAN [Suspect]
     Active Substance: AMBRISENTAN
     Indication: Pulmonary arterial hypertension
  3. XARELTO [Concomitant]
     Active Substance: RIVAROXABAN
  4. OFEV [Concomitant]
     Active Substance: NINTEDANIB
  5. TREPROSTINIL [Concomitant]
     Active Substance: TREPROSTINIL

REACTIONS (4)
  - Dyspnoea [Recovered/Resolved]
  - Loss of consciousness [Recovered/Resolved]
  - Central venous catheterisation [Recovered/Resolved]
  - Infusion site discharge [Unknown]
